FAERS Safety Report 7008388-2 (Version None)
Quarter: 2010Q3

REPORT INFORMATION
  Report Type: 
  Country: None (occurrence: None)
  Receive Date: 20100922
  Receipt Date: 20100908
  Transmission Date: 20110219
  Serious: Yes (Congenital Anomaly)
  Sender: FDA-Public Use
  Company Number: B0646574A

PATIENT
  Sex: Female

DRUGS (2)
  1. AGENERASE [Suspect]
     Indication: PRODUCT USED FOR UNKNOWN INDICATION
  2. TELZIR [Suspect]
     Indication: PRODUCT USED FOR UNKNOWN INDICATION

REACTIONS (4)
  - CONGENITAL CLAVICULAR AGENESIS [None]
  - DRUG EXPOSURE DURING PREGNANCY [None]
  - HEART DISEASE CONGENITAL [None]
  - ILL-DEFINED DISORDER [None]
